FAERS Safety Report 14071737 (Version 1)
Quarter: 2017Q4

REPORT INFORMATION
  Report Type: Spontaneous
  Country: US (occurrence: US)
  Receive Date: 20171010
  Receipt Date: 20171010
  Transmission Date: 20180321
  Serious: Yes (Other)
  Sender: FDA-Public Use
  Company Number: None

PATIENT
  Age: 40 Year
  Weight: 63 kg

DRUGS (4)
  1. LAMICTAL [Concomitant]
     Active Substance: LAMOTRIGINE
  2. LAMOTRIGINE. [Suspect]
     Active Substance: LAMOTRIGINE
     Indication: SEIZURE
     Route: 048
     Dates: start: 20040101, end: 20040101
  3. VALPROIC ACID. [Concomitant]
     Active Substance: VALPROIC ACID
  4. VALPROIC ACID. [Suspect]
     Active Substance: VALPROIC ACID
     Indication: SEIZURE
     Route: 048
     Dates: start: 20000101, end: 20040101

REACTIONS (3)
  - Blood pressure fluctuation [None]
  - Condition aggravated [None]
  - Seizure [None]

NARRATIVE: CASE EVENT DATE: 20040101
